FAERS Safety Report 5686530-3 (Version None)
Quarter: 2008Q1

REPORT INFORMATION
  Report Type: 
  Country: None (occurrence: None)
  Receive Date: 20080328
  Receipt Date: 20070512
  Transmission Date: 20080703
  Serious: No
  Sender: FDA-Public Use
  Company Number: US-BAYER-US-2007-017289

PATIENT
  Age: 29 Year
  Sex: Female
  Weight: 91 kg

DRUGS (2)
  1. MIRENA [Suspect]
     Indication: CONTRACEPTION
     Route: 015
     Dates: start: 20070416
  2. NAPROSYN [Concomitant]
     Indication: TONSILLITIS
     Route: 048
     Dates: start: 20070507

REACTIONS (3)
  - ABDOMINAL PAIN [None]
  - DYSPEPSIA [None]
  - METRORRHAGIA [None]
